FAERS Safety Report 10741788 (Version 5)
Quarter: 2015Q2

REPORT INFORMATION
  Report Type: Spontaneous
  Country: JP (occurrence: JP)
  Receive Date: 20150127
  Receipt Date: 20150415
  Transmission Date: 20150821
  Serious: Yes (Other)
  Sender: FDA-Public Use
  Company Number: JP-ASTELLAS-2015JP001467

PATIENT
  Age: 88 Year
  Sex: Male

DRUGS (7)
  1. PROSEXOL [Concomitant]
     Active Substance: ETHINYL ESTRADIOL
     Indication: HORMONE-REFRACTORY PROSTATE CANCER
     Dosage: UNK UNK, UNKNOWN FREQ.
     Route: 048
     Dates: start: 201308, end: 20150116
  2. URIEF [Concomitant]
     Active Substance: SILODOSIN
     Indication: DYSURIA
     Dosage: UNK UNK, UNKNOWN FREQ.
     Route: 048
  3. TRAMCET [Suspect]
     Active Substance: ACETAMINOPHEN\TRAMADOL
     Indication: METASTASES TO BONE
     Route: 048
  4. URIEF [Concomitant]
     Active Substance: SILODOSIN
     Dosage: UNK UNK, UNKNOWN FREQ.
     Route: 048
     Dates: start: 201501
  5. ZOMETA [Concomitant]
     Active Substance: ZOLEDRONIC ACID
     Indication: PRODUCT USED FOR UNKNOWN INDICATION
     Dosage: UNK UNK, UNKNOWN FREQ.
     Route: 041
  6. CELECOX [Concomitant]
     Active Substance: CELECOXIB
     Indication: COMPRESSION FRACTURE
     Dosage: UNK UNK, UNKNOWN FREQ.
     Route: 048
  7. XTANDI [Suspect]
     Active Substance: ENZALUTAMIDE
     Indication: HORMONE-REFRACTORY PROSTATE CANCER
     Route: 048
     Dates: start: 20150117

REACTIONS (3)
  - Transaminases increased [Not Recovered/Not Resolved]
  - Urinary retention [Unknown]
  - Constipation [Recovering/Resolving]

NARRATIVE: CASE EVENT DATE: 201501
